FAERS Safety Report 4590740-6 (Version None)
Quarter: 2005Q1

REPORT INFORMATION
  Report Type: 
  Country: None (occurrence: None)
  Receive Date: 20050224
  Receipt Date: 20050203
  Transmission Date: 20050727
  Serious: Yes (Hospitalization, Disabling)
  Sender: FDA-Public Use
  Company Number: US-MERCK-0502USA00423

PATIENT
  Age: 71 Year
  Sex: Male
  Weight: 87 kg

DRUGS (9)
  1. VIOXX [Suspect]
     Route: 048
     Dates: start: 20000601, end: 20000801
  2. VIOXX [Suspect]
     Route: 048
     Dates: start: 20000901
  3. LOVASTATIN [Concomitant]
     Route: 065
  4. ATENOLOL [Concomitant]
     Route: 065
  5. LISINOPRIL [Concomitant]
     Route: 065
  6. HYDROCHLOROTHIAZIDE [Concomitant]
     Route: 065
  7. LEVOTHYROXINE SODIUM [Concomitant]
     Route: 065
  8. RANITIDINE [Concomitant]
     Route: 065
  9. CYANOCOBALAMIN [Concomitant]
     Route: 065

REACTIONS (15)
  - AORTIC VALVE SCLEROSIS [None]
  - CEREBROVASCULAR ACCIDENT [None]
  - DILATATION VENTRICULAR [None]
  - DRUG INEFFECTIVE [None]
  - DYSPEPSIA [None]
  - ERECTILE DYSFUNCTION [None]
  - FIBROMYALGIA [None]
  - HYPERTENSION [None]
  - INSOMNIA [None]
  - MITRAL VALVE INCOMPETENCE [None]
  - PAIN [None]
  - PERNICIOUS ANAEMIA [None]
  - TENDONITIS [None]
  - TRANSIENT ISCHAEMIC ATTACK [None]
  - WEIGHT INCREASED [None]
